FAERS Safety Report 22636381 (Version 1)
Quarter: 2023Q2

REPORT INFORMATION
  Report Type: Spontaneous
  Country: US (occurrence: US)
  Receive Date: 20230623
  Receipt Date: 20230623
  Transmission Date: 20230721
  Serious: No
  Sender: FDA-Public Use
  Company Number: US-TAKEDA-2023TUS060408

PATIENT
  Sex: Female

DRUGS (4)
  1. ULORIC [Suspect]
     Active Substance: FEBUXOSTAT
     Indication: Blood uric acid increased
     Dosage: 40 MILLIGRAM, QD
     Route: 065
  2. GLIPIZIDE [Concomitant]
     Active Substance: GLIPIZIDE
     Dosage: UNK
     Route: 065
  3. AMLODIPINE [Concomitant]
     Active Substance: AMLODIPINE BESYLATE
     Dosage: UNK
     Route: 065
  4. TORSEMIDE [Concomitant]
     Active Substance: TORSEMIDE
     Indication: Blood pressure abnormal
     Dosage: UNK
     Route: 065

REACTIONS (6)
  - Blood urine present [Unknown]
  - Dry skin [Unknown]
  - Skin haemorrhage [Unknown]
  - Pain [Unknown]
  - Rash [Unknown]
  - Pruritus [Unknown]
